FAERS Safety Report 5372330-0 (Version None)
Quarter: 2007Q2

REPORT INFORMATION
  Report Type: 
  Country: None (occurrence: None)
  Receive Date: 20070620
  Receipt Date: 20070326
  Transmission Date: 20071010
  Serious: No
  Sender: FDA-Public Use
  Company Number: 2007RL000139

PATIENT
  Age: 59 Year
  Sex: Female
  Weight: 68.0396 kg

DRUGS (6)
  1. OMACOR [Suspect]
     Indication: BLOOD TRIGLYCERIDES INCREASED
     Dosage: 3 MG;QD;PO, 4 GM;QD;PO
     Route: 048
     Dates: start: 20060101
  2. ADVIL LIQUI-GELS [Concomitant]
  3. INDERAL LA [Concomitant]
  4. PREVACID [Concomitant]
  5. LASIX [Concomitant]
  6. MULTIVITAMIN [Concomitant]

REACTIONS (4)
  - BLOOD PRESSURE INCREASED [None]
  - HYPERHIDROSIS [None]
  - SINUSITIS [None]
  - WEIGHT INCREASED [None]
